FAERS Safety Report 4362119-3 (Version None)
Quarter: 2004Q2

REPORT INFORMATION
  Report Type: 
  Country: None (occurrence: None)
  Receive Date: 20040517
  Receipt Date: 20040430
  Transmission Date: 20050107
  Serious: Yes (Hospitalization)
  Sender: FDA-Public Use
  Company Number: 193192

PATIENT
  Sex: Female

DRUGS (1)
  1. AVONEX      BIOGEN [Suspect]
     Indication: MULTIPLE SCLEROSIS

REACTIONS (2)
  - ASTHENIA [None]
  - BREAST OPERATION [None]
